FAERS Safety Report 15405258 (Version 1)
Quarter: 2018Q4

REPORT INFORMATION
  Report Type: Spontaneous
  Country: IL (occurrence: IL)
  Receive Date: 20180920
  Receipt Date: 20180920
  Transmission Date: 20190204
  Serious: Yes (Other)
  Sender: FDA-Public Use
  Company Number: IL-TEVA-2018-IL-955482

PATIENT
  Age: 17 Year
  Sex: Female

DRUGS (1)
  1. FLUTINE 20 [Suspect]
     Active Substance: FLUOXETINE HYDROCHLORIDE
     Route: 065

REACTIONS (2)
  - Persistent depressive disorder [Unknown]
  - Nervousness [Unknown]
